FAERS Safety Report 4267229-7 (Version None)
Quarter: 2004Q1

REPORT INFORMATION
  Report Type: 
  Country: None (occurrence: None)
  Receive Date: 20040107
  Receipt Date: 20031229
  Transmission Date: 20041129
  Serious: Yes (Disabling)
  Sender: FDA-Public Use
  Company Number: TCI2003A04644

PATIENT
  Age: 51 Year
  Sex: Female

DRUGS (11)
  1. LEUPLIN (LEUROLIDE ACETATE) [Suspect]
     Indication: BREAST CANCER
     Dosage: 3.75 MG (3.75 MG, 1 IN 28 D) SUBCUTANEOUS
     Route: 058
     Dates: start: 20020111, end: 20031017
  2. LEUPLIN (LEUROLIDE ACETATE) [Suspect]
     Indication: BREAST OPERATION
     Dosage: 3.75 MG (3.75 MG, 1 IN 28 D) SUBCUTANEOUS
     Route: 058
     Dates: start: 20020111, end: 20031017
  3. LEUPLIN (LEUROLIDE ACETATE) [Suspect]
     Indication: MENOPAUSE
     Dosage: 3.75 MG (3.75 MG, 1 IN 28 D) SUBCUTANEOUS
     Route: 058
     Dates: start: 20020111, end: 20031017
  4. NOLVADEX [Suspect]
     Dosage: 20 MG (20 MG, 1 IN 1 D) PER ORAL
     Route: 048
     Dates: start: 20020111, end: 20031222
  5. DOGMATYL (SULPIRIDE) [Concomitant]
  6. EBASTEL (EBASTINE) ( [Concomitant]
  7. SHIN CHUGAI ICHYOUYAKU (SUCRALFATE) [Concomitant]
  8. S. TAC EVE (S. TAC EVE) [Concomitant]
  9. COR TYZINE (NASAL DROPS (INCLUDING NASAL SPRAY) [Concomitant]
  10. PL (PL GRAN.) (POWDER) [Concomitant]
  11. NAZAL (CHLORPHENAMINE MALEATE) (INCLUDING NASAL SPRAY) [Concomitant]

REACTIONS (3)
  - COLOUR BLINDNESS [None]
  - DRUG INTERACTION [None]
  - RETINAL DEGENERATION [None]
